FAERS Safety Report 7034271-2 (Version None)
Quarter: 2010Q4

REPORT INFORMATION
  Report Type: 
  Country: None (occurrence: None)
  Receive Date: 20101008
  Receipt Date: 20101001
  Transmission Date: 20110411
  Serious: Yes (Other)
  Sender: FDA-Public Use
  Company Number: US-BAYER-201027803NA

PATIENT
  Age: 12 Month
  Sex: Female

DRUGS (1)
  1. BETASERON [Suspect]
     Indication: PRODUCT USED FOR UNKNOWN INDICATION
     Dosage: 1995 ESTIMATED YEAR BETASERON WAS STARTED
     Dates: start: 19950101, end: 19950101

REACTIONS (2)
  - PAIN [None]
  - PYREXIA [None]
